FAERS Safety Report 4866046-4 (Version None)
Quarter: 2005Q4

REPORT INFORMATION
  Report Type: 
  Country: None (occurrence: None)
  Receive Date: 20051221
  Receipt Date: 20051205
  Transmission Date: 20060501
  Serious: Yes (Other)
  Sender: FDA-Public Use
  Company Number: 200514028BCC

PATIENT
  Age: 67 Year
  Sex: Male
  Weight: 89.8122 kg

DRUGS (9)
  1. ORIGINAL ALKA SELZER TABLETS [Suspect]
     Indication: DYSPEPSIA
     Dosage: IRR, ORAL
     Route: 048
     Dates: start: 19850101, end: 20051004
  2. ORIGINAL ALKA SELZER TABLETS [Suspect]
     Indication: FLATULENCE
     Dosage: IRR, ORAL
     Route: 048
     Dates: start: 19850101, end: 20051004
  3. ORIGINAL ALKA SELZER TABLETS [Suspect]
     Indication: PROPHYLAXIS
     Dosage: IRR, ORAL
     Route: 048
     Dates: start: 19850101, end: 20051004
  4. PLAVIX [Concomitant]
  5. CELEXA [Concomitant]
  6. PRAVACHOL [Concomitant]
  7. PROTONIX [Concomitant]
  8. EQUATE ASPIRIN [Concomitant]
  9. BETAPACE [Concomitant]

REACTIONS (1)
  - BLOOD GLUCOSE FLUCTUATION [None]
